FAERS Safety Report 7642960-1 (Version None)
Quarter: 2011Q3

REPORT INFORMATION
  Report Type: 
  Country: None (occurrence: None)
  Receive Date: 20110728
  Receipt Date: 20090616
  Transmission Date: 20111222
  Serious: Yes (Other)
  Sender: FDA-Public Use
  Company Number: US-BAYER-200838202NA

PATIENT
  Age: 47 Year
  Sex: Female
  Weight: 59.091 kg

DRUGS (8)
  1. MULTIHANCE [Suspect]
     Indication: IMAGING PROCEDURE
  2. GADOLINIUM IN UNSPECIFIED DRUG [Suspect]
     Indication: NUCLEAR MAGNETIC RESONANCE IMAGING BRAIN
     Dosage: UNK UNK, ONCE
     Route: 042
     Dates: start: 20061030, end: 20061030
  3. MAGNEVIST [Suspect]
     Indication: NUCLEAR MAGNETIC RESONANCE IMAGING
  4. OMNISCAN [Suspect]
     Indication: NUCLEAR MAGNETIC RESONANCE IMAGING
  5. OMNISCAN [Suspect]
  6. OPTIMARK [Suspect]
     Indication: IMAGING PROCEDURE
  7. PROHANCE [Suspect]
     Indication: IMAGING PROCEDURE
  8. ATARAX [Concomitant]

REACTIONS (10)
  - PEAU D'ORANGE [None]
  - ANXIETY [None]
  - SKIN HYPERTROPHY [None]
  - PAIN [None]
  - FIBROSIS [None]
  - NEPHROGENIC SYSTEMIC FIBROSIS [None]
  - SKIN HYPERPIGMENTATION [None]
  - PRURITUS [None]
  - EMOTIONAL DISTRESS [None]
  - SKIN DISORDER [None]
